FAERS Safety Report 5011206-5 (Version None)
Quarter: 2006Q2

REPORT INFORMATION
  Report Type: 
  Country: None (occurrence: None)
  Receive Date: 20060523
  Receipt Date: 20060523
  Transmission Date: 20061013
  Serious: Yes (Hospitalization)
  Sender: FDA-Public Use
  Company Number: None

PATIENT

DRUGS (1)
  1. HEPARIN [Suspect]
     Indication: ATRIAL FIBRILLATION

REACTIONS (1)
  - RETROPERITONEAL HAEMORRHAGE [None]
